FAERS Safety Report 12763717 (Version 2)
Quarter: 2017Q3

REPORT INFORMATION
  Report Type: Spontaneous
  Country: US (occurrence: US)
  Receive Date: 20160920
  Receipt Date: 20170821
  Transmission Date: 20171127
  Serious: Yes (Other)
  Sender: FDA-Public Use
  Company Number: US-ELI_LILLY_AND_COMPANY-US201609003267

PATIENT
  Age: 34 Year
  Sex: Female

DRUGS (3)
  1. OPSUMIT [Concomitant]
     Active Substance: MACITENTAN
     Indication: PULMONARY ARTERIAL HYPERTENSION
     Dosage: UNK
     Route: 048
     Dates: start: 20141101
  2. REMODULIN [Suspect]
     Active Substance: TREPROSTINIL
     Indication: PULMONARY ARTERIAL HYPERTENSION
     Dosage: UNK UNK, UNKNOWN
     Route: 058
     Dates: start: 20130301
  3. ADCIRCA [Suspect]
     Active Substance: TADALAFIL
     Indication: PULMONARY ARTERIAL HYPERTENSION
     Dosage: UNK UNK, UNKNOWN
     Route: 048
     Dates: start: 20131101

REACTIONS (8)
  - Hypersensitivity [Unknown]
  - Oxygen saturation decreased [Unknown]
  - Injection site pain [Unknown]
  - Postpericardiotomy syndrome [Not Recovered/Not Resolved]
  - Injection site irritation [Unknown]
  - Pain [Unknown]
  - Dermatitis contact [Unknown]
  - Nausea [Unknown]

NARRATIVE: CASE EVENT DATE: 20160530
